FAERS Safety Report 11589705 (Version 2)
Quarter: 2015Q4

REPORT INFORMATION
  Report Type: Spontaneous
  Country: GB (occurrence: GB)
  Receive Date: 20151002
  Receipt Date: 20151019
  Transmission Date: 20160304
  Serious: Yes (Life-Threatening, Hospitalization)
  Sender: FDA-Public Use
  Company Number: GB-PFIZER INC-2015321603

PATIENT
  Age: 69 Year
  Sex: Male

DRUGS (3)
  1. INLYTA [Suspect]
     Active Substance: AXITINIB
     Indication: METASTATIC RENAL CELL CARCINOMA
     Dosage: 3 MG, 2X/DAY
     Route: 048
     Dates: start: 201304, end: 20150305
  2. AMLODIPINE [Concomitant]
     Active Substance: AMLODIPINE BESYLATE
     Indication: HYPERTENSION
     Dosage: 10 MG, UNK
     Route: 048
  3. THYROXINE [Concomitant]
     Active Substance: LEVOTHYROXINE
     Indication: HYPOTHYROIDISM
     Dosage: 175 ?G, UNK
     Route: 048

REACTIONS (3)
  - Disease progression [Unknown]
  - Metastatic renal cell carcinoma [Unknown]
  - Myocardial infarction [Recovered/Resolved]

NARRATIVE: CASE EVENT DATE: 201502
